FAERS Safety Report 10042106 (Version 1)
Quarter: 2014Q1

REPORT INFORMATION
  Report Type: Spontaneous
  Country: CA (occurrence: CA)
  Receive Date: 20140327
  Receipt Date: 20140327
  Transmission Date: 20141002
  Serious: Yes (Other)
  Sender: FDA-Public Use
  Company Number: CA-PFIZER INC-2014085726

PATIENT
  Age: 62 Year
  Sex: Male

DRUGS (2)
  1. LIPITOR [Suspect]
     Dosage: 20 MG, UNK
  2. ATORVASTATIN CALCIUM [Suspect]

REACTIONS (2)
  - Cardiac valve disease [Unknown]
  - Drug intolerance [Unknown]
